FAERS Safety Report 13422691 (Version 2)
Quarter: 2017Q2

REPORT INFORMATION
  Report Type: Spontaneous
  Country: US (occurrence: US)
  Receive Date: 20170410
  Receipt Date: 20170418
  Transmission Date: 20170830
  Serious: No
  Sender: FDA-Public Use
  Company Number: US-AMGEN-USASP2017047663

PATIENT
  Age: 69 Year
  Sex: Female

DRUGS (3)
  1. ENBREL [Suspect]
     Active Substance: ETANERCEPT
     Dosage: UNK
     Route: 065
  2. ENBREL [Suspect]
     Active Substance: ETANERCEPT
     Indication: RHEUMATOID ARTHRITIS
     Dosage: UNK
     Route: 065
  3. BENADRYL [Suspect]
     Active Substance: DIPHENHYDRAMINE HYDROCHLORIDE
     Indication: PARADOXICAL DRUG REACTION
     Dosage: UNK
     Route: 065

REACTIONS (22)
  - Hyperhidrosis [Recovering/Resolving]
  - Swelling face [Recovering/Resolving]
  - Hypertension [Not Recovered/Not Resolved]
  - Rash erythematous [Recovering/Resolving]
  - Oral discomfort [Recovering/Resolving]
  - Paradoxical drug reaction [Unknown]
  - Dizziness [Not Recovered/Not Resolved]
  - Tooth fracture [Unknown]
  - Rash pustular [Recovering/Resolving]
  - Respiratory tract congestion [Recovering/Resolving]
  - Chills [Recovering/Resolving]
  - Fall [Unknown]
  - Ear pain [Recovering/Resolving]
  - Feeling abnormal [Unknown]
  - Pruritus [Recovering/Resolving]
  - Skin burning sensation [Recovering/Resolving]
  - Eye discharge [Recovering/Resolving]
  - Mass [Unknown]
  - Skin exfoliation [Recovering/Resolving]
  - Chest discomfort [Recovered/Resolved]
  - Pain [Not Recovered/Not Resolved]
  - Headache [Not Recovered/Not Resolved]

NARRATIVE: CASE EVENT DATE: 201612
